FAERS Safety Report 5147712-2 (Version None)
Quarter: 2006Q3

REPORT INFORMATION
  Report Type: 
  Country: None (occurrence: None)
  Receive Date: 20060915
  Receipt Date: 20060725
  Transmission Date: 20061208
  Serious: No
  Sender: FDA-Public Use
  Company Number: 2006RL000277

PATIENT
  Age: 73 Year
  Sex: Female

DRUGS (1)
  1. OMACOR [Suspect]
     Indication: PROPHYLAXIS
     Dosage: 2 GM;QD;PO
     Route: 048
     Dates: start: 20060101

REACTIONS (4)
  - ABDOMINAL DISTENSION [None]
  - ERUCTATION [None]
  - MEDICATION ERROR [None]
  - OFF LABEL USE [None]
